FAERS Safety Report 13928943 (Version 2)
Quarter: 2017Q4

REPORT INFORMATION
  Report Type: Report from Study
  Country: US (occurrence: US)
  Receive Date: 20170901
  Receipt Date: 20171215
  Transmission Date: 20180320
  Serious: Yes (Other)
  Sender: FDA-Public Use
  Company Number: US-CIPLA LTD.-2017US15658

PATIENT

DRUGS (3)
  1. OLAPARIB. [Suspect]
     Active Substance: OLAPARIB
     Indication: OVARIAN CANCER
     Dosage: UNK
     Route: 065
  2. CARBOPLATIN. [Suspect]
     Active Substance: CARBOPLATIN
     Indication: OVARIAN CANCER
     Dosage: 1.5 MG/ML X MIN, WEEKLY
     Route: 065
  3. CARBOPLATIN. [Suspect]
     Active Substance: CARBOPLATIN
     Indication: NEOPLASM
     Dosage: UNK
     Route: 065

REACTIONS (1)
  - Disease progression [Unknown]
